FAERS Safety Report 4366234-X (Version None)
Quarter: 2004Q2

REPORT INFORMATION
  Report Type: 
  Country: None (occurrence: None)
  Receive Date: 20040527
  Receipt Date: 20040428
  Transmission Date: 20050107
  Serious: No
  Sender: FDA-Public Use
  Company Number: US-BRISTOL-MYERS SQUIBB COMPANY-12576625

PATIENT
  Age: 47 Year
  Sex: Female

DRUGS (1)
  1. DEFINITY [Suspect]
     Route: 040
     Dates: start: 20040428, end: 20040428

REACTIONS (4)
  - BLOOD PRESSURE SYSTOLIC DECREASED [None]
  - DIZZINESS [None]
  - DYSPNOEA [None]
  - FLUSHING [None]
